FAERS Safety Report 22635839 (Version 1)
Quarter: 2023Q2

REPORT INFORMATION
  Report Type: Spontaneous
  Country: US (occurrence: None)
  Receive Date: 20230620
  Receipt Date: 20230620
  Transmission Date: 20230722
  Serious: Yes (Hospitalization)
  Sender: FDA-Public Use
  Company Number: None

PATIENT
  Sex: Female

DRUGS (18)
  1. VERZENIO [Suspect]
     Active Substance: ABEMACICLIB
     Indication: Breast cancer female
     Dosage: FREQUENCY : DAILY;?
     Route: 048
  2. ABASTRIZIKE [Concomitant]
  3. CEFPODOXIME [Concomitant]
     Active Substance: CEFPODOXIME
  4. COENZYME COQ10 [Concomitant]
  5. CRANBERRY [Concomitant]
     Active Substance: CRANBERRY
  6. CREON [Concomitant]
     Active Substance: PANCRELIPASE AMYLASE\PANCRELIPASE LIPASE\PANCRELIPASE PROTEASE
  7. MELATONIN [Concomitant]
     Active Substance: MELATONIN
  8. VITAMIN B12 [Concomitant]
     Active Substance: CYANOCOBALAMIN
  9. FOSAMAX [Concomitant]
     Active Substance: ALENDRONATE SODIUM
  10. FUROSEMIDE [Concomitant]
     Active Substance: FUROSEMIDE
  11. HAIR/SKIN/NAILS [Concomitant]
  12. METAMUCIL [Concomitant]
     Active Substance: PLANTAGO SEED
  13. VITAMINS [Concomitant]
     Active Substance: VITAMINS
  14. NEURIVA [Concomitant]
  15. OMEPRAZOLE [Concomitant]
     Active Substance: OMEPRAZOLE
  16. POTASSIUM [Concomitant]
     Active Substance: POTASSIUM
  17. VITAMIN C [Concomitant]
     Active Substance: ASCORBIC ACID
  18. VITAMIN D3 [Concomitant]
     Active Substance: CHOLECALCIFEROL

REACTIONS (1)
  - Hospitalisation [None]
